FAERS Safety Report 9106519 (Version 1)
Quarter: 2013Q1

REPORT INFORMATION
  Report Type: Spontaneous
  Country: FR (occurrence: FR)
  Receive Date: 20130221
  Receipt Date: 20130221
  Transmission Date: 20140127
  Serious: Yes (Hospitalization)
  Sender: FDA-Public Use
  Company Number: FR-ELI_LILLY_AND_COMPANY-FR201302003723

PATIENT
  Sex: Female

DRUGS (9)
  1. PROZAC [Suspect]
     Dosage: 1 DF, UNKNOWN
     Route: 048
  2. COUMADINE [Concomitant]
     Dosage: 7 MG, QD
  3. KARDEGIC [Concomitant]
     Dosage: 75 MG, QD
  4. ZOLPIDEM [Concomitant]
     Dosage: 1 DF, UNKNOWN
  5. CACIT VITAMINE D3 [Concomitant]
     Dosage: 1 DF, UNKNOWN
  6. FUROSEMIDE [Concomitant]
     Dosage: 1 DF, UNKNOWN
  7. OMEPRAZOLE [Concomitant]
     Dosage: 1 DF, UNKNOWN
  8. LYRICA [Concomitant]
     Dosage: 1 DF, UNKNOWN
  9. EXELON [Concomitant]
     Dosage: 1 DF, UNKNOWN

REACTIONS (4)
  - Anaemia [Recovering/Resolving]
  - Melaena [Recovered/Resolved]
  - Rectal haemorrhage [Recovered/Resolved]
  - Diverticulum intestinal [Unknown]
